FAERS Safety Report 10273500 (Version 1)
Quarter: 2014Q2

REPORT INFORMATION
  Report Type: Spontaneous
  Country: IT (occurrence: None)
  Receive Date: 20140630
  Receipt Date: 20140630
  Transmission Date: 20141212
  Serious: Yes (Hospitalization)
  Sender: FDA-Public Use
  Company Number: AUR-APL-2014-06674

PATIENT
  Age: 64 Year
  Sex: Male

DRUGS (1)
  1. AMOXICILLINA TABLETS 1G (AMOXICILLIN) TABLET, 1G [Suspect]
     Indication: TOOTHACHE
     Dosage: 1 G, TOTAL, ORAL
     Route: 048
     Dates: start: 20140226, end: 20140226

REACTIONS (1)
  - Tongue oedema [None]
